FAERS Safety Report 4697985-5 (Version None)
Quarter: 2005Q2

REPORT INFORMATION
  Report Type: 
  Country: None (occurrence: None)
  Receive Date: 20050622
  Receipt Date: 20050622
  Transmission Date: 20051028
  Serious: Yes (Death, Hospitalization)
  Sender: FDA-Public Use
  Company Number: None

PATIENT
  Age: 77 Year
  Sex: Female
  Weight: 66 kg

DRUGS (4)
  1. INFLIXIMAB [Suspect]
     Indication: RHEUMATOID ARTHRITIS
     Dosage: 400 MG 8 WEEKS INTRAVENOUS
     Route: 042
     Dates: start: 20021029, end: 20050315
  2. METHOTREXATE [Concomitant]
  3. ALENDRONATE [Concomitant]
  4. ADVAIR [Concomitant]

REACTIONS (5)
  - ARRHYTHMIA [None]
  - COLITIS [None]
  - PNEUMONIA STAPHYLOCOCCAL [None]
  - PULMONARY CAVITATION [None]
  - RENAL FAILURE [None]
